FAERS Safety Report 16232118 (Version 1)
Quarter: 2019Q2

REPORT INFORMATION
  Report Type: Spontaneous
  Country: ES (occurrence: ES)
  Receive Date: 20190424
  Receipt Date: 20190424
  Transmission Date: 20190711
  Serious: Yes (Life-Threatening, Hospitalization)
  Sender: FDA-Public Use
  Company Number: ES-TEVA-2019-ES-1040906

PATIENT
  Age: 68 Year
  Sex: Male

DRUGS (3)
  1. OXALIPLATINO [Suspect]
     Active Substance: OXALIPLATIN
     Dates: start: 20180326
  2. ACIDO FOLINICO [Concomitant]
     Active Substance: LEUCOVORIN CALCIUM
     Dates: start: 20180326
  3. FLUOROURACILO [Suspect]
     Active Substance: FLUOROURACIL
     Dates: start: 20180326

REACTIONS (1)
  - Supraventricular tachycardia [Recovered/Resolved]

NARRATIVE: CASE EVENT DATE: 20181107
